FAERS Safety Report 6846887-4 (Version None)
Quarter: 2010Q3

REPORT INFORMATION
  Report Type: 
  Country: None (occurrence: None)
  Receive Date: 20100715
  Receipt Date: 20070919
  Transmission Date: 20110219
  Serious: Yes (Other)
  Sender: FDA-Public Use
  Company Number: US-PFIZER INC-2007079620

PATIENT
  Sex: Female

DRUGS (1)
  1. CHANTIX [Suspect]

REACTIONS (7)
  - DEPRESSION [None]
  - EMOTIONAL DISORDER [None]
  - IRRITABILITY [None]
  - NAUSEA [None]
  - SUICIDAL IDEATION [None]
  - TOBACCO USER [None]
  - UNEVALUABLE EVENT [None]
